FAERS Safety Report 7984104-2 (Version None)
Quarter: 2011Q4

REPORT INFORMATION
  Report Type: 
  Country: None (occurrence: None)
  Receive Date: 20111216
  Receipt Date: 20111213
  Transmission Date: 20120403
  Serious: No
  Sender: FDA-Public Use
  Company Number: US-PFIZER INC-2011303936

PATIENT
  Sex: Female
  Weight: 68.027 kg

DRUGS (9)
  1. LYRICA [Concomitant]
     Dosage: UNK
     Dates: start: 20110101
  2. OMEPRAZOLE [Concomitant]
     Indication: GASTRIC DISORDER
     Dosage: 20 MG, 1X/DAY
  3. BACLOFEN [Concomitant]
     Dosage: 10 MG, 3X/DAY
     Dates: start: 20111112
  4. SIMVASTATIN [Concomitant]
     Indication: BLOOD CHOLESTEROL INCREASED
     Dosage: 40 MG, UNK
  5. PRISTIQ [Suspect]
     Indication: DEPRESSION
     Dosage: 50 MG, 1X/DAY
     Route: 048
     Dates: start: 20111119, end: 20111201
  6. TAPENTADOL [Concomitant]
     Dosage: 100 MG, UNK
     Dates: start: 20111101
  7. AMBIEN [Concomitant]
     Indication: SLEEP DISORDER
     Dosage: 10 MG, UNK
  8. PRISTIQ [Suspect]
     Indication: BACK PAIN
     Dosage: 25 MG, 1X/DAY
     Route: 048
     Dates: start: 20111201, end: 20111212
  9. TEMAZEPAM [Concomitant]
     Indication: SLEEP DISORDER
     Dosage: 50 MG, UNK

REACTIONS (9)
  - AGGRESSION [None]
  - IRRITABILITY [None]
  - ABNORMAL BEHAVIOUR [None]
  - INSOMNIA [None]
  - HOSTILITY [None]
  - NEGATIVE THOUGHTS [None]
  - AGITATION [None]
  - LOGORRHOEA [None]
  - PAIN [None]
